FAERS Safety Report 9931638 (Version 3)
Quarter: 2014Q1

REPORT INFORMATION
  Report Type: Spontaneous
  Country: GB (occurrence: None)
  Receive Date: 20140224
  Receipt Date: 20140311
  Transmission Date: 20141002
  Serious: Yes (Other)
  Sender: FDA-Public Use
  Company Number: AUR-APL-2014-01852

PATIENT
  Sex: Male
  Weight: 76.2 kg

DRUGS (2)
  1. RAMIPRIL (RAMIPRIL) [Suspect]
     Indication: HYPERTENSION
     Route: 048
     Dates: start: 20090101, end: 20120101
  2. DOXAZOSIN (DOXAZOSIN) [Concomitant]

REACTIONS (4)
  - Lacrimation increased [None]
  - Head banging [None]
  - Parosmia [None]
  - Quality of life decreased [None]
